FAERS Safety Report 6968413-1 (Version None)
Quarter: 2010Q3

REPORT INFORMATION
  Report Type: 
  Country: None (occurrence: None)
  Receive Date: 20100907
  Receipt Date: 20100824
  Transmission Date: 20110219
  Serious: Yes (Other)
  Sender: FDA-Public Use
  Company Number: PHHY2010US56050

PATIENT
  Sex: Female
  Weight: 65.83 kg

DRUGS (4)
  1. FEMARA [Suspect]
     Indication: BREAST CANCER
     Dosage: DAILY
     Route: 048
     Dates: start: 20060614
  2. CARTIA XT [Concomitant]
     Indication: HYPERTENSION
     Dosage: UNK
     Dates: start: 19980101
  3. TRIAMTERENE AND HYDROCHLOROTHIAZID 75/50 [Concomitant]
     Indication: ATRIAL FIBRILLATION
     Dosage: UNK
     Route: 048
     Dates: start: 19980101
  4. TAMBOCOR [Concomitant]
     Indication: ATRIAL FIBRILLATION
     Dosage: 50 MG, BID
     Dates: start: 19980101

REACTIONS (8)
  - ANAEMIA [None]
  - BIOPSY BONE MARROW ABNORMAL [None]
  - GASTROINTESTINAL INFECTION [None]
  - HERPES ZOSTER [None]
  - HYPERCHLORHYDRIA [None]
  - RESTLESS LEGS SYNDROME [None]
  - UPPER RESPIRATORY TRACT INFECTION [None]
  - WHITE BLOOD CELL COUNT DECREASED [None]
